FAERS Safety Report 18967321 (Version 1)
Quarter: 2021Q1

REPORT INFORMATION
  Report Type: Spontaneous
  Country: US (occurrence: US)
  Receive Date: 20210304
  Receipt Date: 20210304
  Transmission Date: 20210420
  Serious: No
  Sender: FDA-Public Use
  Company Number: US-GLAXOSMITHKLINE-US2021054992

PATIENT
  Sex: Female

DRUGS (1)
  1. LAMICTAL [Suspect]
     Active Substance: LAMOTRIGINE
     Indication: PRODUCT USED FOR UNKNOWN INDICATION
     Dosage: UNK, 1 PILL A DAY, BREAKS IT IN HALF
     Route: 048
     Dates: start: 20030101, end: 20210226

REACTIONS (2)
  - Wrong technique in product usage process [Unknown]
  - Intentional underdose [Unknown]
